FAERS Safety Report 4369434-8 (Version None)
Quarter: 2004Q2

REPORT INFORMATION
  Report Type: 
  Country: None (occurrence: None)
  Receive Date: 20040527
  Receipt Date: 20040517
  Transmission Date: 20050107
  Serious: Yes (Other)
  Sender: FDA-Public Use
  Company Number: HQWYE972918MAY04

PATIENT
  Age: 46 Year
  Sex: Female
  Weight: 77.18 kg

DRUGS (4)
  1. EFFEXOR XR [Suspect]
     Indication: STRESS SYMPTOMS
     Dosage: 75 MG 1 X PER 1 DAY, ORAL
     Route: 048
     Dates: start: 19980101, end: 20040509
  2. CAPTOPRIL [Concomitant]
  3. ESTRACE [Concomitant]
  4. CLONAZEPAM [Concomitant]

REACTIONS (11)
  - ARTHRALGIA [None]
  - ASTHENIA [None]
  - BACK PAIN [None]
  - CRYING [None]
  - DIZZINESS [None]
  - DRUG WITHDRAWAL SYNDROME [None]
  - HALLUCINATION, VISUAL [None]
  - INSOMNIA [None]
  - PAIN IN JAW [None]
  - SUICIDAL IDEATION [None]
  - VOMITING [None]
